APPROVED DRUG PRODUCT: VISICOL
Active Ingredient: SODIUM PHOSPHATE, DIBASIC, ANHYDROUS; SODIUM PHOSPHATE, MONOBASIC, MONOHYDRATE
Strength: 0.398GM;1.102GM
Dosage Form/Route: TABLET;ORAL
Application: N021097 | Product #001
Applicant: SALIX PHARMACEUTICALS INC
Approved: Sep 21, 2000 | RLD: No | RS: No | Type: DISCN